FAERS Safety Report 6793349 (Version 2)
Quarter: 2025Q1

REPORT INFORMATION
  Report Type: Spontaneous
  Country: ES (occurrence: ES)
  Receive Date: 20081022
  Receipt Date: 20250311
  Transmission Date: 20250409
  Serious: Yes (Hospitalization)
  Sender: PURDUE
  Company Number: ES-PURDUE-GBR_2008_0004523

PATIENT
  Age: 82 Year
  Sex: Female
  Weight: 85 kg

DRUGS (8)
  1. MORPHINE SULFATE [Suspect]
     Active Substance: MORPHINE SULFATE
     Indication: Back pain
     Route: 065
     Dates: start: 20061213, end: 20061230
  2. NEURONTIN [Suspect]
     Active Substance: GABAPENTIN
     Indication: Back pain
     Dosage: 900 MG, DAILY
     Route: 048
     Dates: start: 20061215, end: 20061230
  3. NEURONTIN [Suspect]
     Active Substance: GABAPENTIN
     Dosage: || DOSE UNIT FREQUENCY: 1.8 G-GRAMS || FREQUENCY UNIT: 1 DAY
     Route: 048
     Dates: start: 20061215, end: 20061230
  4. OMEPRAZOL                          /00661201/ [Concomitant]
     Indication: Product used for unknown indication
     Dosage: 10 MILLIGRAM, DAILY
     Route: 065
  5. RAMIPRIL [Concomitant]
     Active Substance: RAMIPRIL
     Indication: Essential hypertension
     Route: 065
  6. NEURONTIN [Concomitant]
     Active Substance: GABAPENTIN
     Indication: Product used for unknown indication
     Dosage: || DOSE UNIT FREQUENCY: 900 MG-MILLIGRAMS || DOSE PER DOSE: 300 MG-MILLIGRAMS || NUMBER OF DOSES PER
     Route: 048
     Dates: start: 2004, end: 20061214
  7. NOVOMIX 30                         /02607201/ [Concomitant]
     Indication: Diabetes mellitus
     Dosage: 10 MG, DAILY
     Route: 065
  8. PREVENCOR                          /01326102/ [Concomitant]
     Indication: Lipid metabolism disorder
     Dosage: 20 MG, DAILY
     Route: 048

REACTIONS (6)
  - Acute psychosis [Recovered/Resolved]
  - Chorea [Recovered/Resolved]
  - Creatinine renal clearance decreased [Recovered/Resolved]
  - Hallucination [Recovered/Resolved]
  - Confusional state [Recovered/Resolved]
  - Somnolence [Recovered/Resolved]

NARRATIVE: CASE EVENT DATE: 20061223
